FAERS Safety Report 7074992-9 (Version None)
Quarter: 2010Q4

REPORT INFORMATION
  Report Type: 
  Country: None (occurrence: None)
  Receive Date: 20101029
  Receipt Date: 20100409
  Transmission Date: 20110411
  Serious: No
  Sender: FDA-Public Use
  Company Number: US-WYE-H13750710

PATIENT
  Age: 85 Year
  Sex: Female
  Weight: 59.02 kg

DRUGS (2)
  1. ADVIL PM [Suspect]
     Indication: PAIN
     Dosage: 2 CAPLETS AS NEEDED
     Route: 048
     Dates: end: 20100217
  2. ADVIL PM [Suspect]
     Indication: INSOMNIA

REACTIONS (2)
  - APTYALISM [None]
  - DRY MOUTH [None]
